FAERS Safety Report 10194802 (Version 2)
Quarter: 2014Q2

REPORT INFORMATION
  Report Type: Spontaneous
  Country: US (occurrence: US)
  Receive Date: 20140526
  Receipt Date: 20140526
  Transmission Date: 20141212
  Serious: Yes (Hospitalization, Other)
  Sender: FDA-Public Use
  Company Number: US-AMGEN-USASP2014035417

PATIENT
  Age: 75 Year
  Sex: Female
  Weight: 63.49 kg

DRUGS (19)
  1. ENBREL [Suspect]
     Indication: RHEUMATOID ARTHRITIS
     Dosage: 50 MG, QWK
     Route: 058
     Dates: start: 20131111, end: 20140409
  2. LEFLUNOMIDE [Suspect]
     Indication: RHEUMATOID ARTHRITIS
     Dosage: 20 MG, QD
     Route: 048
     Dates: start: 200805, end: 20140416
  3. METHOTREXATE [Suspect]
     Indication: RHEUMATOID ARTHRITIS
     Dosage: 10 MG, QWK
     Route: 048
     Dates: start: 201402, end: 20140416
  4. PREDNISONE [Suspect]
     Indication: RHEUMATOID ARTHRITIS
     Dosage: 5 MG, QD
     Route: 048
  5. TENORMIN [Concomitant]
     Dosage: 50 MG, QD
     Route: 048
  6. NEURONTIN [Concomitant]
     Dosage: 600 MG, TID
     Route: 048
  7. MIRALAX                            /06344701/ [Concomitant]
     Dosage: 17 G, AS NECESSARY
     Route: 048
  8. PERCOCET                           /00446701/ [Concomitant]
     Dosage: 10/325 MG, 1-2 TAB Q4 HR AS NEEEDED
     Route: 048
  9. CENTRUM SILVER                     /02363801/ [Concomitant]
     Dosage: 1 TAB PO DAILY
     Route: 048
  10. CELEBREX [Concomitant]
     Dosage: 200 MG, BID
     Route: 048
  11. COLACE [Concomitant]
     Dosage: 100 MG, DAILY
     Route: 048
  12. CALTRATE D PLUS MINERALS [Concomitant]
     Dosage: 1 TAB PO BID
     Route: 048
  13. OMEPRAZOLE [Concomitant]
     Dosage: 20 MG, DAILY
     Route: 048
  14. OXYCONTIN [Concomitant]
     Dosage: 10 MG, Q12 HR
     Route: 048
  15. CELEXA                             /00582602/ [Concomitant]
     Dosage: 1 TAB PO DAILY
     Route: 048
  16. NORVASC [Concomitant]
     Dosage: 5 MG, QD
  17. FOLIC ACID [Concomitant]
     Dosage: 1 MG, QD
     Route: 048
  18. ARAVA [Concomitant]
     Dosage: 20 MG, QD
     Route: 048
  19. VITAMIN D                          /00107901/ [Concomitant]
     Dosage: 1000 UNIT, QD
     Route: 048

REACTIONS (29)
  - Acute respiratory failure [Unknown]
  - Diarrhoea [Unknown]
  - Hypoxia [Unknown]
  - Kyphosis [Unknown]
  - Bronchospasm [Unknown]
  - Anxiety [Unknown]
  - Wheezing [Unknown]
  - Mucous membrane disorder [Unknown]
  - Rhonchi [Unknown]
  - Joint dislocation [Unknown]
  - Fatigue [Unknown]
  - Atelectasis [Unknown]
  - Oral disorder [Unknown]
  - Malaise [Unknown]
  - Dyspnoea [Unknown]
  - Immunosuppression [Unknown]
  - Cardiomegaly [Unknown]
  - Cough [Unknown]
  - Upper respiratory tract congestion [Unknown]
  - Gait disturbance [Unknown]
  - Mobility decreased [Unknown]
  - Limb discomfort [Unknown]
  - Synovitis [Unknown]
  - Arthropathy [Unknown]
  - Stenotrophomonas infection [Unknown]
  - Bronchitis [Unknown]
  - Sepsis [Unknown]
  - Pneumonia [Recovered/Resolved]
  - Back pain [Unknown]
